FAERS Safety Report 12240298 (Version 3)
Quarter: 2017Q2

REPORT INFORMATION
  Report Type: Report from Study
  Country: US (occurrence: US)
  Receive Date: 20160405
  Receipt Date: 20170427
  Transmission Date: 20170830
  Serious: No
  Sender: FDA-Public Use
  Company Number: US-ALEXION-A201602296

PATIENT
  Sex: Female

DRUGS (2)
  1. STRENSIQ [Suspect]
     Active Substance: ASFOTASE ALFA
     Indication: HYPOPHOSPHATASIA
     Dosage: 2 MG/KG, TIW
     Route: 058
  2. STRENSIQ [Suspect]
     Active Substance: ASFOTASE ALFA
     Dosage: 2 MG/KG, TIW
     Route: 058

REACTIONS (5)
  - Injection site pain [Not Recovered/Not Resolved]
  - Mobility decreased [Unknown]
  - Stress fracture [Unknown]
  - Injection site reaction [Not Recovered/Not Resolved]
  - Pain in extremity [Unknown]
